FAERS Safety Report 26129713 (Version 1)
Quarter: 2025Q4

REPORT INFORMATION
  Report Type: Spontaneous
  Country: US (occurrence: None)
  Receive Date: 20251208
  Receipt Date: 20251208
  Transmission Date: 20260118
  Serious: Yes (Other)
  Sender: ORGANON
  Company Number: US-ORGANON-O2512USA000261

PATIENT
  Sex: Male

DRUGS (1)
  1. VTAMA [Suspect]
     Active Substance: TAPINAROF
     Indication: Psoriasis
     Dosage: UNK

REACTIONS (1)
  - Suicidal ideation [Recovered/Resolved]
